FAERS Safety Report 9554109 (Version 1)
Quarter: 2013Q3

REPORT INFORMATION
  Report Type: Spontaneous
  Country: US (occurrence: US)
  Receive Date: 20130925
  Receipt Date: 20130925
  Transmission Date: 20140515
  Serious: No
  Sender: FDA-Public Use
  Company Number: US-ABBVIE-13P-163-1081171-00

PATIENT
  Age: 54 Year
  Sex: Male
  Weight: 149.82 kg

DRUGS (8)
  1. VICOPROFEN [Suspect]
     Indication: MIGRAINE
     Dosage: 2 OR 3 DAILY
     Dates: start: 201210
  2. VICOPROFEN [Suspect]
     Indication: FIBROMYALGIA
  3. VICOPROFEN [Suspect]
     Indication: INTERVERTEBRAL DISC DEGENERATION
  4. ATENOLOL [Concomitant]
     Indication: PRODUCT USED FOR UNKNOWN INDICATION
  5. CYMBALTA [Concomitant]
     Indication: PRODUCT USED FOR UNKNOWN INDICATION
  6. LIPITOR [Concomitant]
     Indication: PRODUCT USED FOR UNKNOWN INDICATION
  7. AMRIX [Concomitant]
     Indication: BACK PAIN
  8. XANAX [Concomitant]
     Indication: PRODUCT USED FOR UNKNOWN INDICATION

REACTIONS (2)
  - Pain in extremity [Not Recovered/Not Resolved]
  - Chest pain [Not Recovered/Not Resolved]
